FAERS Safety Report 6281407-7 (Version None)
Quarter: 2009Q3

REPORT INFORMATION
  Report Type: 
  Country: None (occurrence: None)
  Receive Date: 20090724
  Receipt Date: 20090507
  Transmission Date: 20100115
  Serious: No
  Sender: FDA-Public Use
  Company Number: A0782991A

PATIENT
  Sex: Male

DRUGS (6)
  1. AVANDIA [Suspect]
     Dosage: 4MG PER DAY
     Route: 048
  2. CRESTOR [Suspect]
     Dosage: 5MG PER DAY
     Route: 048
     Dates: start: 20090409
  3. TRICOR [Suspect]
     Dosage: 145MG PER DAY
     Route: 048
  4. INSULIN [Concomitant]
  5. PLAVIX [Concomitant]
  6. CAPTOPRIL [Concomitant]

REACTIONS (1)
  - JOINT SWELLING [None]
